FAERS Safety Report 9153827 (Version 1)
Quarter: 2013Q1

REPORT INFORMATION
  Report Type: Spontaneous
  Country: US (occurrence: None)
  Receive Date: 20130205
  Receipt Date: 20130205
  Transmission Date: 20140127
  Serious: Yes (Hospitalization)
  Sender: FDA-Public Use
  Company Number: GER/ITL/13/0027705

PATIENT
  Age: 78 Year
  Sex: Female

DRUGS (5)
  1. CLOPIDOGREL (CLOPIDOGREL) [Suspect]
     Indication: MYOCARDIAL ISCHAEMIA
     Route: 048
     Dates: start: 20000101, end: 20121222
  2. CONGESCOR (BISOPROLOL) [Concomitant]
  3. GLUCOPHAGE (METFORMIN HYDROCHLORIDE) [Concomitant]
  4. PEPTAZOL (LANSOPRAZOLE) [Concomitant]
  5. AMARYL (GLIMEPIRIDE) [Concomitant]

REACTIONS (2)
  - Anaemia [None]
  - Asthenia [None]
